FAERS Safety Report 4434374-2 (Version None)
Quarter: 2004Q3

REPORT INFORMATION
  Report Type: 
  Country: None (occurrence: None)
  Receive Date: 20040825
  Receipt Date: 20040806
  Transmission Date: 20050211
  Serious: Yes (Hospitalization, Other)
  Sender: FDA-Public Use
  Company Number: USA040260402

PATIENT
  Age: 54 Year
  Sex: Male
  Weight: 67 kg

DRUGS (2)
  1. FORTEO [Suspect]
     Dates: start: 20030302
  2. ANDROGEL [Concomitant]

REACTIONS (2)
  - FIBROMA [None]
  - HAEMANGIOPERICYTOMA [None]
